FAERS Safety Report 4551794-6 (Version None)
Quarter: 2005Q1

REPORT INFORMATION
  Report Type: 
  Country: None (occurrence: None)
  Receive Date: 20050111
  Receipt Date: 20050104
  Transmission Date: 20050727
  Serious: Yes (Death)
  Sender: FDA-Public Use
  Company Number: 200510008BNE

PATIENT
  Age: 76 Year
  Sex: Male

DRUGS (7)
  1. CIPROFLOXACIN [Suspect]
     Indication: SEPSIS
     Dosage: 500 MG, BID, ORAL
     Route: 048
     Dates: start: 20030902, end: 20030922
  2. ALLOPURINOL [Concomitant]
  3. CO-AMILOFRUSE [Concomitant]
  4. METFORMIN HCL [Concomitant]
  5. ROSIGLITAZONE MALEATE [Concomitant]
  6. LISINOPRIL [Concomitant]
  7. TRANEXAMIC ACID [Concomitant]

REACTIONS (1)
  - CLOSTRIDIUM COLITIS [None]
